FAERS Safety Report 23604902 (Version 1)
Quarter: 2024Q1

REPORT INFORMATION
  Report Type: Spontaneous
  Country: FR (occurrence: FR)
  Receive Date: 20240307
  Receipt Date: 20240307
  Transmission Date: 20240410
  Serious: Yes (Hospitalization, Congenital Anomaly, Other)
  Sender: FDA-Public Use
  Company Number: FR-SUNPHARMA-2024RR-434962AA

PATIENT
  Sex: Female

DRUGS (4)
  1. BACLOFEN [Suspect]
     Active Substance: BACLOFEN
     Indication: Alcoholism
     Dosage: 10MG - 5MG - 10MG
     Route: 064
     Dates: start: 20230202, end: 20231010
  2. METHADONE [Suspect]
     Active Substance: METHADONE HYDROCHLORIDE
     Indication: Drug dependence
     Dosage: 90 MILLIGRAM, DAILY
     Route: 064
     Dates: start: 20230202, end: 20231010
  3. OXAZEPAM [Suspect]
     Active Substance: OXAZEPAM
     Indication: Drug dependence
     Dosage: 1 DOSAGE FORM, DAILY
     Route: 064
     Dates: start: 20230202, end: 20231010
  4. AMITRIPTYLINE HYDROCHLORIDE [Suspect]
     Active Substance: AMITRIPTYLINE HYDROCHLORIDE
     Indication: Drug dependence
     Dosage: 1 DOSAGE FORM, DAILY
     Route: 064
     Dates: start: 20230202, end: 20231010

REACTIONS (2)
  - Withdrawal syndrome [Recovering/Resolving]
  - Foetal growth restriction [Recovered/Resolved]

NARRATIVE: CASE EVENT DATE: 20231010
